FAERS Safety Report 21422150 (Version 1)
Quarter: 2022Q4

REPORT INFORMATION
  Report Type: Spontaneous
  Country: US (occurrence: None)
  Receive Date: 20221006
  Receipt Date: 20221006
  Transmission Date: 20230113
  Serious: Yes (unspecified)
  Sender: FDA-Public Use
  Company Number: None

PATIENT
  Age: 62 Year
  Sex: Male
  Weight: 74.25 kg

DRUGS (5)
  1. JANTOVEN [Suspect]
     Active Substance: WARFARIN SODIUM
     Indication: Aortic valve disease
     Dosage: FREQUENCY : AT BEDTIME;?
     Route: 048
     Dates: start: 20220622, end: 20220824
  2. METOPROLOL [Concomitant]
     Active Substance: METOPROLOL
  3. FLECAINIDE [Concomitant]
     Active Substance: FLECAINIDE
  4. VITAMIN D [Concomitant]
     Active Substance: VITAMIN D NOS
  5. MAGNESIUM [Concomitant]
     Active Substance: MAGNESIUM

REACTIONS (1)
  - International normalised ratio increased [None]

NARRATIVE: CASE EVENT DATE: 20220715
